FAERS Safety Report 20955365 (Version 1)
Quarter: 2022Q2

REPORT INFORMATION
  Report Type: Spontaneous
  Country: US (occurrence: None)
  Receive Date: 20220613
  Receipt Date: 20220613
  Transmission Date: 20220721
  Serious: Yes (Other)
  Sender: FDA-Public Use
  Company Number: None

PATIENT
  Age: 62 Year
  Sex: Female
  Weight: 78.1 kg

DRUGS (1)
  1. DOCETAXEL [Suspect]
     Active Substance: DOCETAXEL
     Indication: Breast cancer
     Dosage: OTHER FREQUENCY : ONCE;?
     Route: 042
     Dates: start: 20220528, end: 20220528

REACTIONS (3)
  - Hypoaesthesia oral [None]
  - Palpitations [None]
  - Arthralgia [None]

NARRATIVE: CASE EVENT DATE: 20220528
